FAERS Safety Report 4841742-3 (Version None)
Quarter: 2005Q4

REPORT INFORMATION
  Report Type: 
  Country: None (occurrence: None)
  Receive Date: 20051130
  Receipt Date: 20050914
  Transmission Date: 20060501
  Serious: Yes (Other)
  Sender: FDA-Public Use
  Company Number: PHBS2005JP13551

PATIENT
  Age: 38 Year
  Sex: Female
  Weight: 45.9 kg

DRUGS (18)
  1. METHOTREXATE [Concomitant]
     Indication: STEM CELL TRANSPLANT
     Dosage: 14 MG/DAY
  2. METHOTREXATE [Concomitant]
     Dosage: 10 MG/DAY
  3. METHOTREXATE [Concomitant]
     Dosage: 10 MG/DAY
  4. NEORAL [Suspect]
     Indication: STEM CELL TRANSPLANT
     Dosage: 300 MG/D
     Route: 048
     Dates: start: 20041126, end: 20041227
  5. SANDIMMUNE [Suspect]
     Indication: STEM CELL TRANSPLANT
     Dosage: 70 MG, BID
     Route: 042
     Dates: start: 20041011, end: 20041125
  6. CYCLOPHOSPHAMIDE [Concomitant]
     Indication: STEM CELL TRANSPLANT
  7. CYTARABINE [Concomitant]
     Indication: STEM CELL TRANSPLANT
  8. IRRADIATION [Concomitant]
     Indication: STEM CELL TRANSPLANT
  9. PREDNISOLONE [Suspect]
     Dosage: 20 MG/DAY
     Route: 048
     Dates: start: 20041126, end: 20041219
  10. PREDNISOLONE [Suspect]
     Dosage: 20-50 MG/D
     Route: 048
     Dates: start: 20041220
  11. BASEN [Concomitant]
     Indication: HYPERGLYCAEMIA
     Dosage: 0.2 MG/D
     Route: 048
  12. OMEPRAL [Concomitant]
     Dosage: 20 MG/D
     Route: 048
  13. FUNGIZONE [Concomitant]
     Dosage: 6 ML/D
     Route: 048
  14. MAGLAX [Concomitant]
  15. EVOXAC [Concomitant]
     Dosage: 90 MG/D
     Route: 048
  16. ZOVIRAX [Concomitant]
     Dosage: 1000 MG/D
     Route: 048
     Dates: start: 20041001, end: 20041116
  17. SLOW-K [Concomitant]
     Dosage: 1200 MG/D
     Route: 048
  18. COTRIM [Suspect]
     Dosage: 4 DF, QW
     Route: 048
     Dates: start: 20040701

REACTIONS (5)
  - AUTOIMMUNE THROMBOCYTOPENIA [None]
  - GRAFT VERSUS HOST DISEASE [None]
  - HEPATIC ENZYME INCREASED [None]
  - HYPERGLYCAEMIA [None]
  - PETECHIAE [None]
